FAERS Safety Report 6734201-4 (Version None)
Quarter: 2010Q2

REPORT INFORMATION
  Report Type: 
  Country: None (occurrence: None)
  Receive Date: 20100520
  Receipt Date: 20100513
  Transmission Date: 20101027
  Serious: Yes (Other)
  Sender: FDA-Public Use
  Company Number: UY-PFIZER INC-2010046417

PATIENT
  Age: 38 Year
  Sex: Female
  Weight: 55 kg

DRUGS (2)
  1. NEURONTIN [Suspect]
     Indication: HEADACHE
     Dosage: 300 MG, 1X/DAY
     Route: 048
     Dates: start: 20100312, end: 20100317
  2. YASMIN [Concomitant]
     Dosage: UNK
     Route: 048

REACTIONS (5)
  - DIZZINESS [None]
  - HEADACHE [None]
  - HYPERVIGILANCE [None]
  - SLEEP DISORDER DUE TO GENERAL MEDICAL CONDITION, INSOMNIA TYPE [None]
  - SPINAL DISORDER [None]
